FAERS Safety Report 7609479-5 (Version None)
Quarter: 2011Q3

REPORT INFORMATION
  Report Type: 
  Country: None (occurrence: None)
  Receive Date: 20110714
  Receipt Date: 20110713
  Transmission Date: 20111222
  Serious: Yes (Other)
  Sender: FDA-Public Use
  Company Number: US-PFIZER INC-2011141086

PATIENT
  Sex: Female
  Weight: 54.42 kg

DRUGS (1)
  1. DILANTIN-125 [Suspect]
     Indication: CONVULSION
     Dosage: 400 MG, DAILY
     Route: 048

REACTIONS (2)
  - PARAESTHESIA [None]
  - DRUG INEFFECTIVE [None]
